FAERS Safety Report 6583435-0 (Version None)
Quarter: 2010Q1

REPORT INFORMATION
  Report Type: 
  Country: None (occurrence: None)
  Receive Date: 20100212
  Receipt Date: 20100212
  Transmission Date: 20100710
  Serious: Yes (Life-Threatening, Hospitalization)
  Sender: FDA-Public Use
  Company Number: None

PATIENT
  Age: 78 Year
  Sex: Male
  Weight: 70.49 kg

DRUGS (1)
  1. WARFARIN SODIUM [Suspect]
     Indication: CARDIAC VALVE PROSTHESIS USER
     Dosage: 50 MG QWEEK PO
     Route: 048
     Dates: start: 20081031, end: 20091010

REACTIONS (1)
  - GASTRIC HAEMORRHAGE [None]
